FAERS Safety Report 15139889 (Version 1)
Quarter: 2018Q3

REPORT INFORMATION
  Report Type: Spontaneous
  Country: US (occurrence: US)
  Receive Date: 20180713
  Receipt Date: 20180713
  Transmission Date: 20181010
  Serious: No
  Sender: FDA-Public Use
  Company Number: US-SA-2018SA184687

PATIENT
  Sex: Male

DRUGS (2)
  1. IMIPRAMINE [Interacting]
     Active Substance: IMIPRAMINE
  2. AUBAGIO [Suspect]
     Active Substance: TERIFLUNOMIDE
     Indication: MULTIPLE SCLEROSIS
     Dosage: UNK
     Route: 048
     Dates: start: 20180520, end: 20180525

REACTIONS (3)
  - Euphoric mood [Not Recovered/Not Resolved]
  - Drug interaction [Not Recovered/Not Resolved]
  - Panic attack [Recovering/Resolving]
